FAERS Safety Report 4648016-4 (Version None)
Quarter: 2005Q2

REPORT INFORMATION
  Report Type: 
  Country: None (occurrence: None)
  Receive Date: 20050428
  Receipt Date: 20050425
  Transmission Date: 20051028
  Serious: Yes (Other)
  Sender: FDA-Public Use
  Company Number: US-MERCK-0504USA04382

PATIENT
  Age: 4 Year
  Sex: Female

DRUGS (3)
  1. SINGULAIR [Suspect]
     Indication: BRONCHIOLITIS
     Route: 048
     Dates: start: 20050411, end: 20050415
  2. AUGMENTIN '125' [Concomitant]
     Route: 065
  3. VASOTEC [Concomitant]
     Route: 065

REACTIONS (2)
  - ERYTHEMA [None]
  - OEDEMA PERIPHERAL [None]
